FAERS Safety Report 5525080-1 (Version None)
Quarter: 2007Q4

REPORT INFORMATION
  Report Type: 
  Country: None (occurrence: None)
  Receive Date: 20071119
  Receipt Date: 20071107
  Transmission Date: 20080405
  Serious: Yes (Hospitalization)
  Sender: FDA-Public Use
  Company Number: 20074096

PATIENT
  Sex: Female

DRUGS (1)
  1. LIORESAL [Suspect]
     Indication: MUSCLE SPASTICITY
     Dosage: 200-900 ,CG. DAILY, INTRATHECAL
     Route: 037

REACTIONS (7)
  - AGITATION [None]
  - FALL [None]
  - HALLUCINATION [None]
  - MEDICAL DEVICE COMPLICATION [None]
  - PAIN [None]
  - PAIN IN EXTREMITY [None]
  - PYREXIA [None]
